FAERS Safety Report 18477301 (Version 1)
Quarter: 2020Q4

REPORT INFORMATION
  Report Type: Spontaneous
  Country: FR (occurrence: FR)
  Receive Date: 20201107
  Receipt Date: 20201107
  Transmission Date: 20210114
  Serious: Yes (Hospitalization)
  Sender: FDA-Public Use
  Company Number: FR-TEVA-2020-FR-1845095

PATIENT
  Age: 61 Year
  Sex: Female
  Weight: 107 kg

DRUGS (14)
  1. PAROXETINE (CHLORHYDRATE DE) ANHYDRE [Concomitant]
     Active Substance: PAROXETINE
     Indication: DEPRESSION
     Dosage: 20 MG
     Route: 048
  2. ACTISKENAN 10 MG, GELULE [Concomitant]
     Active Substance: MORPHINE SULFATE
     Indication: PAIN
     Dosage: DOSAGE NOT SPECIFIED
     Route: 048
  3. DAFALGAN [Concomitant]
     Active Substance: ACETAMINOPHEN
     Indication: PAIN
     Dosage: 2000 MG
  4. SERETIDE [Concomitant]
     Active Substance: FLUTICASONE PROPIONATE\SALMETEROL XINAFOATE
     Indication: ASTHMA
     Dosage: 2000 MICROGRAM DAILY; 2 INHALTION MORNING AND EVENING
     Route: 055
  5. VANCOMYCINE [Suspect]
     Active Substance: VANCOMYCIN
     Indication: KNEE ARTHROPLASTY
     Dosage: 6 GRAM
     Route: 041
     Dates: start: 20200323, end: 20200403
  6. UVEDOSE [Concomitant]
     Active Substance: CHOLECALCIFEROL
     Indication: VITAMIN D DEFICIENCY
     Dosage: 1 DF
  7. MONTELUKAST [Concomitant]
     Active Substance: MONTELUKAST SODIUM
     Indication: ASTHMA
     Dosage: 10 MG
     Route: 048
  8. LANSOYL [Concomitant]
     Active Substance: MINERAL OIL
     Indication: CONSTIPATION
     Dosage: 2 DF
  9. XANAX [Concomitant]
     Active Substance: ALPRAZOLAM
     Dosage: SCORED TABLET, 1CP / DAY IF NECESSARY, 0.5 MG
     Route: 048
  10. LAMALINE (ACETAMINOPHEN\CAFFEINE\OPIUM) [Concomitant]
     Active Substance: ACETAMINOPHEN\CAFFEINE\OPIUM
     Indication: PAIN
     Dosage: 4 DF
     Route: 048
  11. VERSATIS 5 %, EMPLATRE MEDICAMENTEUX [Concomitant]
     Active Substance: LIDOCAINE
     Indication: PAIN
     Dosage: 700 MG 12H/24H
     Route: 003
     Dates: start: 202003
  12. FUNGIZONE [Concomitant]
     Active Substance: AMPHOTERICIN B
     Indication: ORAL FUNGAL INFECTION
     Dosage: DOSAGE NOT SPECIFIED
     Route: 048
  13. VITAMINE C [Concomitant]
     Active Substance: ASCORBIC ACID
     Dosage: 1 GRAM
     Route: 048
  14. RIFAMPICINE [Concomitant]
     Active Substance: RIFAMPIN
     Indication: KNEE ARTHROPLASTY
     Dosage: 1200 MG
     Route: 042
     Dates: start: 20200323, end: 20200403

REACTIONS (1)
  - Acute kidney injury [Recovering/Resolving]

NARRATIVE: CASE EVENT DATE: 20200403
